FAERS Safety Report 6572385-1 (Version None)
Quarter: 2010Q1

REPORT INFORMATION
  Report Type: 
  Country: None (occurrence: None)
  Receive Date: 20100205
  Receipt Date: 20100128
  Transmission Date: 20100710
  Serious: Yes (Other)
  Sender: FDA-Public Use
  Company Number: US-SANOFI-AVENTIS-2010SA005447

PATIENT
  Age: 47 Year
  Sex: Female

DRUGS (2)
  1. MULTAQ [Suspect]
     Route: 048
     Dates: start: 20091119, end: 20091201
  2. FLECAINIDE ACETATE [Concomitant]
     Route: 065
     Dates: end: 20091119

REACTIONS (3)
  - CARDIAC FAILURE CONGESTIVE [None]
  - DYSPNOEA [None]
  - WEIGHT INCREASED [None]
